FAERS Safety Report 4890310-6 (Version None)
Quarter: 2006Q1

REPORT INFORMATION
  Report Type: 
  Country: None (occurrence: None)
  Receive Date: 20060124
  Receipt Date: 20060118
  Transmission Date: 20060701
  Serious: Yes (Hospitalization)
  Sender: FDA-Public Use
  Company Number: US-MERCK-0601USA02429

PATIENT
  Sex: Male

DRUGS (2)
  1. VIOXX [Suspect]
     Route: 048
     Dates: start: 20020101
  2. ARTHROTEC [Concomitant]
     Route: 048
     Dates: start: 20020101

REACTIONS (2)
  - ACUTE CORONARY SYNDROME [None]
  - CARDIAC DISORDER [None]
